FAERS Safety Report 19992976 (Version 1)
Quarter: 2021Q4

REPORT INFORMATION
  Report Type: Spontaneous
  Country: US (occurrence: US)
  Receive Date: 20211026
  Receipt Date: 20211026
  Transmission Date: 20220304
  Serious: Yes (Other)
  Sender: FDA-Public Use
  Company Number: US-SUN PHARMACEUTICAL INDUSTRIES LTD-2021R1-315078

PATIENT
  Age: 66 Year
  Sex: Female

DRUGS (26)
  1. DULOXETINE [Interacting]
     Active Substance: DULOXETINE
     Indication: Major depression
     Dosage: 30 MILLIGRAM, BID
     Route: 048
  2. METOPROLOL [Suspect]
     Active Substance: METOPROLOL
     Indication: Hypertensive heart disease
     Dosage: 100 MILLIGRAM, BID
     Route: 048
  3. HYDROCODONE [Interacting]
     Active Substance: HYDROCODONE
     Indication: Pain
     Dosage: 7.5/325 MG (FOUR TIMES DAILY AS NEEDED FOR PAIN)
     Route: 048
  4. ACETAMINOPHEN [Concomitant]
     Active Substance: ACETAMINOPHEN
     Indication: Pain
     Dosage: 650 MILLIGRAM(THREE TIMES DAILY AS NEEDED FOR PAIN)
     Route: 048
  5. GABAPENTIN [Concomitant]
     Active Substance: GABAPENTIN
     Indication: Pain
     Dosage: 600 MILLIGRAM, TID
     Route: 048
  6. DICLOFENAC [Concomitant]
     Active Substance: DICLOFENAC
     Indication: Pain
     Dosage: 2 GRAM, PRN
     Route: 061
  7. Methyl salicylate/menthol/camphor [Concomitant]
     Indication: Pain
     Dosage: UNK, PRN
     Route: 061
  8. LIDOCAINE [Concomitant]
     Active Substance: LIDOCAINE
     Indication: Pain
     Dosage: UNK, PRN
     Route: 061
  9. AMLODIPINE [Concomitant]
     Active Substance: AMLODIPINE BESYLATE
     Indication: Hypertensive heart disease
     Dosage: 5 MILLIGRAM, DAILY
     Route: 048
  10. METOPROLOL TARTRATE [Concomitant]
     Active Substance: METOPROLOL TARTRATE
     Indication: Hypertensive heart disease
     Dosage: 100 MILLIGRAM, BID
     Route: 048
  11. VALSARTAN [Concomitant]
     Active Substance: VALSARTAN
     Indication: Hypertensive heart disease
     Dosage: 320 MILLIGRAM, DAILY
     Route: 048
  12. CLONIDINE [Concomitant]
     Active Substance: CLONIDINE
     Indication: Hypertensive heart disease
     Dosage: 0.1 MILLIGRAM, DAILY
     Route: 048
  13. FUROSEMIDE [Concomitant]
     Active Substance: FUROSEMIDE
     Indication: Hypertensive heart disease
     Dosage: 40 MILLIGRAM, DAILY
     Route: 048
  14. APIXABAN [Concomitant]
     Active Substance: APIXABAN
     Indication: Atrial fibrillation
     Dosage: 5 MILLIGRAM, DAILY
     Route: 048
  15. DRONEDARONE [Concomitant]
     Active Substance: DRONEDARONE
     Indication: Atrial fibrillation
     Dosage: 400 MILLIGRAM, BID
     Route: 048
  16. ALLOPURINOL [Concomitant]
     Active Substance: ALLOPURINOL
     Indication: Gout
     Dosage: 300 MILLIGRAM, DAILY
     Route: 048
  17. LEVOTHYROXINE [Concomitant]
     Active Substance: LEVOTHYROXINE
     Indication: Hypothyroidism
     Dosage: 88 MICROGRAM, DAILY
     Route: 048
  18. INSULIN ASPART [Concomitant]
     Active Substance: INSULIN ASPART
     Indication: Type 2 diabetes mellitus
     Dosage: 26 UNIT, TID
     Route: 058
  19. INSULIN GLARGINE [Concomitant]
     Active Substance: INSULIN GLARGINE
     Indication: Type 2 diabetes mellitus
     Dosage: 20 MILLIGRAM, DAILY
     Route: 058
  20. PANTOPRAZOLE [Concomitant]
     Active Substance: PANTOPRAZOLE
     Indication: Gastrooesophageal reflux disease
     Dosage: 40 MILLIGRAM, DAILY
     Route: 048
  21. MELATONIN [Concomitant]
     Active Substance: MELATONIN
     Indication: Insomnia
     Dosage: 5 MILLIGRAM, DAILY
     Route: 048
  22. LOPERAMIDE [Concomitant]
     Active Substance: LOPERAMIDE
     Indication: Diarrhoea
     Dosage: 2 MILLIGRAM(FOUR TIMES DAILY AS NEEDED)
     Route: 048
  23. ONDANSETRON [Concomitant]
     Active Substance: ONDANSETRON
     Indication: Nausea
     Dosage: 4 MILLIGRAM, PRN
     Route: 048
  24. NYSTATIN [Concomitant]
     Active Substance: NYSTATIN
     Indication: Candida infection
     Dosage: 1000U/GRAM(FOUR TIMES DAILY AS NEEDED)
     Route: 048
  25. CALCITRIOL [Concomitant]
     Active Substance: CALCITRIOL
     Indication: Supplementation therapy
     Dosage: 0.25 MICROGRAM, DAILY
     Route: 048
  26. CHOLECALCIFEROL [Concomitant]
     Active Substance: CHOLECALCIFEROL
     Indication: Supplementation therapy
     Dosage: 2000 UNIT, DAILY
     Route: 048

REACTIONS (2)
  - Drug interaction [Unknown]
  - CYP2D6 polymorphism [Unknown]
